FAERS Safety Report 20744943 (Version 1)
Quarter: 2022Q2

REPORT INFORMATION
  Report Type: Spontaneous
  Country: US (occurrence: US)
  Receive Date: 20220425
  Receipt Date: 20220425
  Transmission Date: 20220721
  Serious: Yes (Death, Life-Threatening, Hospitalization, Other)
  Sender: FDA-Public Use
  Company Number: US-PFIZER INC-202200417744

PATIENT
  Age: 45 Year
  Sex: Male

DRUGS (1)
  1. PROPOFOL [Suspect]
     Active Substance: PROPOFOL
     Indication: COVID-19 pneumonia
     Dosage: UNK
     Dates: start: 202202

REACTIONS (4)
  - Respiratory failure [Fatal]
  - COVID-19 pneumonia [Fatal]
  - Pneumothorax [Fatal]
  - Off label use [Unknown]

NARRATIVE: CASE EVENT DATE: 20220201
